FAERS Safety Report 24857387 (Version 2)
Quarter: 2025Q1

REPORT INFORMATION
  Report Type: Spontaneous
  Country: FR (occurrence: FR)
  Receive Date: 20250117
  Receipt Date: 20250210
  Transmission Date: 20250408
  Serious: Yes (Hospitalization)
  Sender: MYLAN
  Company Number: None

PATIENT
  Age: 83 Year
  Sex: Male
  Weight: 75 kg

DRUGS (12)
  1. TRAMADOL [Suspect]
     Active Substance: TRAMADOL
     Indication: Product used for unknown indication
     Route: 048
     Dates: start: 20241225, end: 20241225
  2. AMOXICILLIN\CLAVULANIC ACID [Concomitant]
     Active Substance: AMOXICILLIN\CLAVULANIC ACID
     Indication: Pneumonia
     Dosage: 3 GRAM, QD
     Route: 042
     Dates: start: 20241228, end: 20241231
  3. ATORVASTATIN [Concomitant]
     Active Substance: ATORVASTATIN
     Indication: Hypercholesterolaemia
     Dosage: 20 MILLIGRAM, QD
     Route: 048
     Dates: start: 20241227, end: 20241231
  4. SYMBICORT [Concomitant]
     Active Substance: BUDESONIDE\FORMOTEROL FUMARATE DIHYDRATE
     Indication: Chronic obstructive pulmonary disease
     Dosage: 2 DOSAGE FORM, QD
     Route: 055
     Dates: start: 20241228
  5. CLOBAZAM [Concomitant]
     Active Substance: CLOBAZAM
     Indication: Tonic clonic movements
     Dosage: 15 MILLIGRAM, QD
     Route: 048
     Dates: start: 20241228, end: 20241231
  6. CLOBAZAM [Concomitant]
     Active Substance: CLOBAZAM
     Dosage: 10 MILLIGRAM, QD
     Route: 048
     Dates: start: 20250101, end: 20250114
  7. CLOBAZAM [Concomitant]
     Active Substance: CLOBAZAM
     Dosage: 5 MILLIGRAM, QD
     Route: 048
     Dates: start: 20250115, end: 20250117
  8. LOVENOX [Concomitant]
     Active Substance: ENOXAPARIN SODIUM
     Indication: Product used for unknown indication
     Dosage: 4000 INTERNATIONAL UNIT, QD
     Route: 058
     Dates: start: 20241227, end: 20241231
  9. LOVENOX [Concomitant]
     Active Substance: ENOXAPARIN SODIUM
     Dosage: 14000 INTERNATIONAL UNIT, QD
     Route: 058
     Dates: start: 20250102, end: 20250115
  10. IVABRADINE ARROW [Concomitant]
     Indication: Cardiomyopathy
     Dosage: 5 MILLIGRAM, QD
     Route: 048
     Dates: start: 20241228, end: 20241231
  11. MIANSERIN HYDROCHLORIDE [Concomitant]
     Active Substance: MIANSERIN HYDROCHLORIDE
     Indication: Depression
     Dosage: 30 MILLIGRAM, QD
     Route: 048
     Dates: start: 20241228, end: 20241231
  12. RAMIPRIL [Concomitant]
     Active Substance: RAMIPRIL
     Indication: Depression
     Dosage: 5 MILLIGRAM, QD
     Route: 048
     Dates: start: 20241227, end: 20241231

REACTIONS (2)
  - Acute cholecystitis necrotic [Recovering/Resolving]
  - Intentional overdose [Unknown]

NARRATIVE: CASE EVENT DATE: 20241225
